FAERS Safety Report 24584247 (Version 1)
Quarter: 2024Q4

REPORT INFORMATION
  Report Type: Spontaneous
  Country: US (occurrence: None)
  Receive Date: 20241105
  Receipt Date: 20241105
  Transmission Date: 20250114
  Serious: Yes (Other)
  Sender: Public
  Company Number: None

PATIENT
  Age: 71 Year
  Sex: Male
  Weight: 78.75 kg

DRUGS (1)
  1. DUPIXENT [Suspect]
     Active Substance: DUPILUMAB
     Indication: Dermatitis atopic
     Dosage: OTHER FREQUENCY : QOW;?
     Route: 058
     Dates: start: 20240912, end: 20241001

REACTIONS (5)
  - Fatigue [None]
  - Myalgia [None]
  - Arthralgia [None]
  - Chills [None]
  - Headache [None]

NARRATIVE: CASE EVENT DATE: 20240920
